FAERS Safety Report 21716697 (Version 1)
Quarter: 2022Q4

REPORT INFORMATION
  Report Type: Spontaneous
  Country: CN (occurrence: CN)
  Receive Date: 20221212
  Receipt Date: 20221212
  Transmission Date: 20230113
  Serious: Yes (Other)
  Sender: FDA-Public Use
  Company Number: CN-009507513-2212CHN002686

PATIENT
  Age: 56 Year
  Sex: Female
  Weight: 58 kg

DRUGS (1)
  1. NOXAFIL [Suspect]
     Active Substance: POSACONAZOLE
     Indication: Myelodysplastic syndrome
     Dosage: 5 ML, 1 TIME EVERY 3 DAYS [AS REPORTED]
     Route: 048
     Dates: start: 20221020, end: 20221031

REACTIONS (4)
  - Bradycardia [Recovering/Resolving]
  - Cardiovascular disorder [Unknown]
  - Product use in unapproved indication [Unknown]
  - Product use issue [Unknown]

NARRATIVE: CASE EVENT DATE: 20221020
